FAERS Safety Report 7526469-1 (Version None)
Quarter: 2011Q2

REPORT INFORMATION
  Report Type: 
  Country: None (occurrence: None)
  Receive Date: 20110606
  Receipt Date: 20110602
  Transmission Date: 20111010
  Serious: No
  Sender: FDA-Public Use
  Company Number: US-PFIZER INC-2011120725

PATIENT
  Sex: Female
  Weight: 81.6 kg

DRUGS (3)
  1. METOPROLOL [Concomitant]
     Indication: HYPERTENSION
     Dosage: UNK
  2. PERCOCET [Concomitant]
     Indication: OSTEOARTHRITIS
     Dosage: UNK
     Dates: start: 20110425, end: 20110523
  3. CELEBREX [Suspect]
     Indication: JOINT SWELLING
     Dosage: 200 MG, 2X/DAY
     Route: 048
     Dates: start: 20110428, end: 20110501

REACTIONS (1)
  - RASH [None]
